FAERS Safety Report 4515588-X (Version None)
Quarter: 2004Q4

REPORT INFORMATION
  Report Type: 
  Country: None (occurrence: None)
  Receive Date: 20041126
  Receipt Date: 20041115
  Transmission Date: 20050328
  Serious: Yes (Other)
  Sender: FDA-Public Use
  Company Number: 2004088219

PATIENT
  Age: 43 Year
  Sex: Male

DRUGS (8)
  1. UNASYN [Suspect]
     Indication: PNEUMONIA ASPIRATION
     Dosage: 6 GRAM (1 D), INTRAVENOUS
     Route: 042
     Dates: start: 20040928, end: 20041004
  2. CLINDAMYCIN (CLINDAMYCIN) [Suspect]
     Indication: PNEUMONIA ASPIRATION
     Dosage: 1200 MG (1 D), INTRAVENOUS
     Route: 042
     Dates: start: 20041002, end: 20041004
  3. EDARAVONE (EDARAVONE) [Suspect]
     Indication: CEREBRAL INFARCTION
     Dosage: 1 D, INTRAVENOUS
     Route: 042
     Dates: start: 20040928, end: 20041004
  4. CITICOLINE (CITICOLINE) [Suspect]
     Indication: DEPRESSED LEVEL OF CONSCIOUSNESS
     Dosage: 1 D, INTRAVENOUS
     Route: 042
     Dates: start: 20040928, end: 20041004
  5. GLYCEOL (FRUCTOSE, GLYCEROL) [Concomitant]
  6. FUROSEMIDE [Concomitant]
  7. CARPERITIDE (CARPERITIDE) [Concomitant]
  8. FAMOTIDINE [Concomitant]

REACTIONS (4)
  - ALANINE AMINOTRANSFERASE INCREASED [None]
  - ASPARTATE AMINOTRANSFERASE INCREASED [None]
  - BLOOD LACTATE DEHYDROGENASE INCREASED [None]
  - LIVER DISORDER [None]
